FAERS Safety Report 19246188 (Version 1)
Quarter: 2021Q2

REPORT INFORMATION
  Report Type: Report from Study
  Country: BE (occurrence: BE)
  Receive Date: 20210512
  Receipt Date: 20210512
  Transmission Date: 20210717
  Serious: Yes (Hospitalization)
  Sender: FDA-Public Use
  Company Number: BE-ASPP-GLO2021BE003398

PATIENT

DRUGS (3)
  1. ISATUXIMAB [Suspect]
     Active Substance: ISATUXIMAB
     Indication: PLASMA CELL MYELOMA REFRACTORY
     Dosage: UNK UNK, QCY (ADMINISTRATION TIME: 14:45)
     Route: 065
     Dates: start: 20210122, end: 20210122
  2. POMALIDOMIDE [Suspect]
     Active Substance: POMALIDOMIDE
     Indication: PLASMA CELL MYELOMA REFRACTORY
     Dosage: UNK (ADMINISTRATION TIME: 08:00)
     Route: 065
     Dates: start: 20210122, end: 20210125
  3. DEXAMETHASONE. [Suspect]
     Active Substance: DEXAMETHASONE
     Indication: PLASMA CELL MYELOMA REFRACTORY
     Dosage: UNK, QCY (ADMINISTRATION TIME: 14:00)
     Route: 065
     Dates: start: 20210122, end: 20210122

REACTIONS (1)
  - Platelet count decreased [Recovered/Resolved]

NARRATIVE: CASE EVENT DATE: 20210125
